FAERS Safety Report 22070551 (Version 1)
Quarter: 2023Q1

REPORT INFORMATION
  Report Type: Spontaneous
  Country: US (occurrence: US)
  Receive Date: 20230307
  Receipt Date: 20230307
  Transmission Date: 20230417
  Serious: Yes (Life-Threatening, Hospitalization, Other)
  Sender: FDA-Public Use
  Company Number: None

PATIENT
  Age: 22 Year
  Sex: Female

DRUGS (8)
  1. DEXAMETHASONE [Suspect]
     Active Substance: DEXAMETHASONE
     Indication: T-cell type acute leukaemia
     Dosage: UNK
     Route: 065
     Dates: start: 20220616
  2. CYTARABINE [Suspect]
     Active Substance: CYTARABINE
     Indication: T-cell type acute leukaemia
     Dosage: UNK
     Route: 037
     Dates: start: 20220616
  3. METHOTREXATE [Suspect]
     Active Substance: METHOTREXATE
     Indication: T-cell type acute leukaemia
     Dosage: UNK
     Route: 037
     Dates: start: 20220616
  4. FLUDARABINE [Suspect]
     Active Substance: FLUDARABINE PHOSPHATE
     Indication: Bone marrow conditioning regimen
     Dosage: UNK (HIGH-DOSE)
     Route: 065
  5. MELPHALAN [Suspect]
     Active Substance: MELPHALAN
     Indication: Bone marrow conditioning regimen
     Dosage: HIGH-DOSE
     Route: 065
  6. DAUNORUBICIN [Suspect]
     Active Substance: DAUNORUBICIN
     Indication: T-cell type acute leukaemia
     Dosage: UNK
     Route: 065
     Dates: start: 20220616
  7. VINCRISTINE [Suspect]
     Active Substance: VINCRISTINE
     Indication: T-cell type acute leukaemia
     Dosage: UNK
     Route: 065
     Dates: start: 20220616
  8. PEG/L-ASPARAGINASE [Suspect]
     Active Substance: PEGASPARGASE
     Indication: T-cell type acute leukaemia
     Dosage: TWO DOSES OF 2500 U/M2
     Route: 065
     Dates: start: 20220616

REACTIONS (12)
  - Hypovolaemic shock [Recovered/Resolved]
  - Acute respiratory failure [Recovered/Resolved]
  - Insulin resistance [Recovered/Resolved]
  - Neuropathy peripheral [Recovered/Resolved]
  - Hyperglycaemic hyperosmolar nonketotic syndrome [Recovered/Resolved]
  - Adrenal insufficiency [Recovered/Resolved]
  - Post intensive care syndrome [Recovered/Resolved]
  - Myopathy [Recovered/Resolved]
  - Critical illness [Recovered/Resolved]
  - Ileus [Recovered/Resolved]
  - Nausea [Unknown]
  - Diarrhoea [Unknown]
